FAERS Safety Report 10236776 (Version 1)
Quarter: 2014Q2

REPORT INFORMATION
  Report Type: Report from Study
  Country: NL (occurrence: NL)
  Receive Date: 20140613
  Receipt Date: 20140613
  Transmission Date: 20141212
  Serious: Yes (Other)
  Sender: FDA-Public Use
  Company Number: NL-BAXTER-2014BAX029918

PATIENT
  Sex: 0

DRUGS (5)
  1. ENDOXAN I.V., POEDER VOOR OPLOSSING VOOR INJECTIE 200, 500, 1000 MG [Suspect]
     Indication: LUPUS NEPHRITIS
     Dosage: 6 PULSES
     Route: 042
  2. PREDNISONE [Suspect]
     Indication: LUPUS NEPHRITIS
     Route: 048
  3. PREDNISONE [Suspect]
     Route: 048
  4. MYCOPHENOLATE MOFETIL [Suspect]
     Indication: LUPUS NEPHRITIS
     Route: 065
  5. AZA (AZATHIOPRINE) [Suspect]
     Indication: LUPUS NEPHRITIS
     Route: 065

REACTIONS (1)
  - Disease progression [Unknown]
